FAERS Safety Report 6131125-0 (Version None)
Quarter: 2009Q1

REPORT INFORMATION
  Report Type: 
  Country: None (occurrence: None)
  Receive Date: 20090325
  Receipt Date: 20090317
  Transmission Date: 20090719
  Serious: Yes (Other)
  Sender: FDA-Public Use
  Company Number: FR-PFIZER INC-2009186523

PATIENT

DRUGS (3)
  1. ATORVASTATIN CALCIUM [Suspect]
     Indication: HYPERCHOLESTEROLAEMIA
     Dosage: UNK
     Dates: start: 20090101
  2. LEVOTHYROXINE SODIUM [Concomitant]
     Dosage: UNK
  3. VIOXX [Concomitant]
     Indication: OSTEOPOROSIS

REACTIONS (2)
  - OPTIC NEURITIS [None]
  - VISUAL ACUITY REDUCED [None]
